FAERS Safety Report 24540308 (Version 1)
Quarter: 2024Q4

REPORT INFORMATION
  Report Type: Spontaneous
  Country: GB (occurrence: None)
  Receive Date: 20241023
  Receipt Date: 20241023
  Transmission Date: 20250115
  Serious: No
  Sender: Public
  Company Number: None

PATIENT
  Age: 47 Year
  Sex: Female

DRUGS (1)
  1. HUMIRA [Suspect]
     Active Substance: ADALIMUMAB
     Indication: Rheumatoid arthritis
     Dates: start: 20220901, end: 20230201

REACTIONS (5)
  - Injection site rash [None]
  - Injection site pruritus [None]
  - Injection site warmth [None]
  - Injection site bruising [None]
  - Heart rate increased [None]
